FAERS Safety Report 8080661 (Version 7)
Quarter: 2014Q2

REPORT INFORMATION
  Report Type: Report from Study
  Country: US (occurrence: US)
  Receive Date: 20110808
  Receipt Date: 20140424
  Transmission Date: 20141212
  Serious: Yes (Other)
  Sender: FDA-Public Use
  Company Number: US-PFIZER INC-2011062548

PATIENT
  Age: 78 Year
  Sex: Female
  Weight: 91 kg

DRUGS (8)
  1. CELEBREX [Suspect]
     Indication: ARTHRITIS
     Dosage: 200 MG, 2X/DAY
     Route: 048
     Dates: end: 20110318
  2. CELEBREX [Suspect]
     Indication: ARTHRALGIA
     Dosage: 200 MG, 2X/DAY
     Route: 048
  3. CELEBREX [Suspect]
     Indication: BACK PAIN
  4. CELEBREX [Suspect]
     Indication: PAIN IN EXTREMITY
  5. LYRICA [Suspect]
     Indication: NEURALGIA
     Dosage: 150 MG, 2X/DAY
     Route: 048
  6. DIOVAN HCT [Concomitant]
     Indication: HYPERTENSION
     Dosage: 1X/DAY IN THE MORNING
  7. CALCIUM [Concomitant]
     Dosage: UNK
  8. ZETIA [Concomitant]
     Indication: BLOOD CHOLESTEROL INCREASED
     Dosage: UNK

REACTIONS (12)
  - Thrombosis [Unknown]
  - Atrial fibrillation [Unknown]
  - Arthritis infective [Unknown]
  - Arthralgia [Not Recovered/Not Resolved]
  - Arthropathy [Not Recovered/Not Resolved]
  - Tendon disorder [Unknown]
  - Body height decreased [Unknown]
  - Drug level changed [Unknown]
  - Wheelchair user [Unknown]
  - Malaise [Unknown]
  - Nervousness [Unknown]
  - Drug withdrawal syndrome [Unknown]
